FAERS Safety Report 17361579 (Version 1)
Quarter: 2020Q1

REPORT INFORMATION
  Report Type: Spontaneous
  Country: US (occurrence: US)
  Receive Date: 20200131
  Receipt Date: 20200131
  Transmission Date: 20200409
  Serious: No
  Sender: FDA-Public Use
  Company Number: None

PATIENT
  Age: 43 Year
  Sex: Female
  Weight: 63 kg

DRUGS (6)
  1. AIMOVIG [Suspect]
     Active Substance: ERENUMAB-AOOE
     Indication: MIGRAINE
     Dosage: ?          QUANTITY:1 INJECTION(S);OTHER FREQUENCY:MONTHLY;?
     Route: 030
     Dates: start: 20190927, end: 20200131
  2. COLLAGEN PWDR [Concomitant]
  3. MAGNESIUM CITRATE. [Concomitant]
     Active Substance: MAGNESIUM CITRATE
  4. APPLE CIDER [Concomitant]
  5. METHYLATED B12 [Concomitant]
  6. DIM [Concomitant]

REACTIONS (8)
  - Inadequate analgesia [None]
  - Weight increased [None]
  - Arthralgia [None]
  - Constipation [None]
  - Migraine [None]
  - Feeling abnormal [None]
  - Fatigue [None]
  - Myalgia [None]

NARRATIVE: CASE EVENT DATE: 20191201
